FAERS Safety Report 9791852 (Version 2)
Quarter: 2014Q1

REPORT INFORMATION
  Report Type: Spontaneous
  Country: US (occurrence: US)
  Receive Date: 20140102
  Receipt Date: 20140123
  Transmission Date: 20141002
  Serious: Yes (Other)
  Sender: FDA-Public Use
  Company Number: US-PFIZER INC-2013374682

PATIENT
  Age: 66 Year
  Sex: Female
  Weight: 72.56 kg

DRUGS (7)
  1. CELEBREX [Suspect]
     Indication: PAIN
     Dosage: 200 MG, DAILY
     Dates: start: 201311
  2. CELEBREX [Suspect]
     Indication: MUSCULOSKELETAL STIFFNESS
  3. CELEBREX [Suspect]
     Indication: OSTEITIS
  4. CELEBREX [Suspect]
     Indication: INTERVERTEBRAL DISC DEGENERATION
  5. PREMPRO [Suspect]
     Indication: HOT FLUSH
     Dosage: 625/2.5 MG; DAILY
     Dates: start: 1986
  6. ASPIRIN [Suspect]
     Dosage: 0.81 MG, DAILY
     Dates: start: 201311
  7. PREDNISONE [Concomitant]
     Indication: MYALGIA
     Dosage: UNK

REACTIONS (2)
  - Heart valve incompetence [Unknown]
  - Blood cholesterol increased [Unknown]
